FAERS Safety Report 7561389-8 (Version None)
Quarter: 2011Q2

REPORT INFORMATION
  Report Type: 
  Country: None (occurrence: None)
  Receive Date: 20110621
  Receipt Date: 20100707
  Transmission Date: 20111010
  Serious: No
  Sender: FDA-Public Use
  Company Number: US-ASTRAZENECA-2010SE29577

PATIENT
  Age: 15138 Day
  Sex: Female
  Weight: 56.7 kg

DRUGS (2)
  1. PULMICORT FLEXHALER [Suspect]
     Route: 055
     Dates: start: 20100622
  2. PULMICORT FLEXHALER [Suspect]
     Route: 055
     Dates: start: 20100611

REACTIONS (9)
  - HEART RATE INCREASED [None]
  - LIP SWELLING [None]
  - HEADACHE [None]
  - COUGH [None]
  - NASAL OEDEMA [None]
  - NASAL DISCOMFORT [None]
  - GINGIVAL PAIN [None]
  - GINGIVITIS [None]
  - DYSPNOEA [None]
